FAERS Safety Report 11061500 (Version 1)
Quarter: 2015Q2

REPORT INFORMATION
  Report Type: Spontaneous
  Country: US (occurrence: None)
  Receive Date: 20150422
  Receipt Date: 20150422
  Transmission Date: 20150821
  Serious: Yes (Other)
  Sender: FDA-Public Use
  Company Number: 2833272

PATIENT
  Age: 59 Year
  Sex: 0

DRUGS (5)
  1. METHOTREXATE [Suspect]
     Active Substance: METHOTREXATE
     Indication: NERVOUS SYSTEM DISORDER
     Dosage: TOTAL
     Route: 037
     Dates: start: 20130610
  2. CYTARABINE. [Suspect]
     Active Substance: CYTARABINE
     Indication: NERVOUS SYSTEM DISORDER
     Dosage: TOTAL
     Route: 037
     Dates: start: 20130614
  3. METHOTREXATE [Suspect]
     Active Substance: METHOTREXATE
     Indication: PROPHYLAXIS
     Dosage: TOTAL
     Route: 037
     Dates: start: 20130610
  4. OFATUMUMAB [Concomitant]
     Active Substance: OFATUMUMAB
  5. CYTARABINE. [Suspect]
     Active Substance: CYTARABINE
     Indication: PROPHYLAXIS
     Dosage: TOTAL
     Route: 037
     Dates: start: 20130614

REACTIONS (1)
  - Myelopathy [None]

NARRATIVE: CASE EVENT DATE: 20130615
